FAERS Safety Report 9272049 (Version 1)
Quarter: 2013Q2

REPORT INFORMATION
  Report Type: Spontaneous
  Country: MX (occurrence: MX)
  Receive Date: 20130506
  Receipt Date: 20130506
  Transmission Date: 20140414
  Serious: Yes (Other)
  Sender: FDA-Public Use
  Company Number: MX-BAYER-2013-053781

PATIENT
  Age: 75 Year
  Sex: Male

DRUGS (1)
  1. ASPIRINA PROTECT [Suspect]
     Dosage: 500 MG, UNK
     Route: 048

REACTIONS (1)
  - Cerebrovascular disorder [Unknown]
